FAERS Safety Report 20458616 (Version 5)
Quarter: 2023Q1

REPORT INFORMATION
  Report Type: Report from Study
  Country: FR (occurrence: FR)
  Receive Date: 20220211
  Receipt Date: 20230102
  Transmission Date: 20230418
  Serious: Yes (Death, Life-Threatening, Hospitalization, Other)
  Sender: FDA-Public Use
  Company Number: FR-Intas Spain-000450

PATIENT
  Age: 58 Year
  Sex: Male
  Weight: 106 kg

DRUGS (10)
  1. AMLODIPINE BESYLATE [Interacting]
     Active Substance: AMLODIPINE BESYLATE
     Indication: Atrial fibrillation
     Dosage: UNK
     Route: 048
  2. AMLODIPINE BESYLATE [Interacting]
     Active Substance: AMLODIPINE BESYLATE
     Indication: Suicide attempt
  3. ATORVASTATIN [Interacting]
     Active Substance: ATORVASTATIN
     Indication: Product used for unknown indication
     Dosage: UNK
     Route: 048
  4. BISOPROLOL [Interacting]
     Active Substance: BISOPROLOL
     Indication: Product used for unknown indication
     Dosage: UNK(FILM-COATED TABLET )
     Route: 048
  5. EPLERENONE [Interacting]
     Active Substance: EPLERENONE
     Indication: Product used for unknown indication
     Dosage: UNK
     Route: 048
  6. RAMIPRIL [Interacting]
     Active Substance: RAMIPRIL
     Indication: Product used for unknown indication
     Dosage: UNK
     Route: 048
  7. APIXABAN [Interacting]
     Active Substance: APIXABAN
     Indication: Atrial fibrillation
     Dosage: 10 MILLIGRAM, ONCE A DAY (5 MG, 2X/DAY)
     Route: 048
  8. APIXABAN [Interacting]
     Active Substance: APIXABAN
     Indication: Cerebrovascular accident prophylaxis
  9. APIXABAN [Interacting]
     Active Substance: APIXABAN
     Indication: Anticoagulant therapy
  10. APIXABAN [Interacting]
     Active Substance: APIXABAN
     Indication: Product used for unknown indication
     Dosage: UNK
     Route: 048

REACTIONS (10)
  - Suicide attempt [Fatal]
  - Cardiogenic shock [Fatal]
  - Renal failure [Fatal]
  - Intentional overdose [Fatal]
  - Intentional product misuse [Fatal]
  - Toxicity to various agents [Fatal]
  - Circulatory collapse [Unknown]
  - Overdose [Unknown]
  - Drug interaction [Fatal]
  - Poisoning deliberate [Fatal]
